FAERS Safety Report 6675632-0 (Version None)
Quarter: 2010Q2

REPORT INFORMATION
  Report Type: 
  Country: None (occurrence: None)
  Receive Date: 20100409
  Receipt Date: 20100406
  Transmission Date: 20101027
  Serious: Yes (Hospitalization)
  Sender: FDA-Public Use
  Company Number: Z0003533A

PATIENT
  Age: 72 Year
  Sex: Female

DRUGS (1)
  1. OFATUMUMAB [Suspect]
     Dosage: 3300MG CUMULATIVE DOSE
     Route: 042
     Dates: start: 20090616, end: 20090707

REACTIONS (2)
  - ANAEMIA [None]
  - SYNCOPE [None]
